FAERS Safety Report 5699197-5 (Version None)
Quarter: 2008Q2

REPORT INFORMATION
  Report Type: 
  Country: None (occurrence: None)
  Receive Date: 20080407
  Receipt Date: 20080324
  Transmission Date: 20081010
  Serious: Yes (Hospitalization)
  Sender: FDA-Public Use
  Company Number: 230203M07USA

PATIENT
  Age: 60 Year
  Sex: Female

DRUGS (2)
  1. REBIF [Suspect]
     Indication: MULTIPLE SCLEROSIS
     Dosage: 44 MCG, 3 IN 1 WEEKS, SUBCUTANEOUS
     Route: 058
     Dates: start: 20060118
  2. INSULIN (INSULIN /00030501/) [Concomitant]

REACTIONS (8)
  - ANKLE FRACTURE [None]
  - BREATH SOUNDS ABNORMAL [None]
  - CYANOSIS [None]
  - FALL [None]
  - LETHARGY [None]
  - MUSCULOSKELETAL PAIN [None]
  - PAIN IN EXTREMITY [None]
  - UNRESPONSIVE TO STIMULI [None]
